FAERS Safety Report 6911337-6 (Version None)
Quarter: 2010Q3

REPORT INFORMATION
  Report Type: 
  Country: None (occurrence: None)
  Receive Date: 20100806
  Receipt Date: 20100805
  Transmission Date: 20110219
  Serious: Yes (Hospitalization, Other)
  Sender: FDA-Public Use
  Company Number: DE-BRISTOL-MYERS SQUIBB COMPANY-15118854

PATIENT
  Age: 19 Year
  Sex: Female
  Weight: 65 kg

DRUGS (2)
  1. BARACLUDE [Suspect]
     Dosage: TOTALLY  15 TABS 0.5MG
     Route: 048
     Dates: start: 20100521
  2. SEROQUEL [Suspect]
     Dosage: TOTAL - 10 TABS
     Route: 048
     Dates: start: 20100521

REACTIONS (2)
  - SOMNOLENCE [None]
  - SUICIDE ATTEMPT [None]
